FAERS Safety Report 5585778-6 (Version None)
Quarter: 2008Q1

REPORT INFORMATION
  Report Type: 
  Country: None (occurrence: None)
  Receive Date: 20080109
  Receipt Date: 20080108
  Transmission Date: 20080703
  Serious: Yes (Life-Threatening, Hospitalization, Other)
  Sender: FDA-Public Use
  Company Number: US-BRISTOL-MYERS SQUIBB COMPANY-14012637

PATIENT
  Age: 82 Year
  Sex: Female
  Weight: 61 kg

DRUGS (5)
  1. IXEMPRA [Suspect]
     Indication: BREAST CANCER METASTATIC
     Route: 042
     Dates: start: 20071211
  2. BENADRYL [Concomitant]
     Indication: PREMEDICATION
  3. PEPCID [Concomitant]
     Indication: PREMEDICATION
  4. DURAGESIC-100 [Concomitant]
     Route: 062
  5. STEROIDS [Concomitant]
     Indication: PREMEDICATION

REACTIONS (4)
  - ACUTE RESPIRATORY FAILURE [None]
  - BLOOD THYROID STIMULATING HORMONE INCREASED [None]
  - CARDIAC FAILURE CONGESTIVE [None]
  - HYPERSENSITIVITY [None]
